FAERS Safety Report 25510727 (Version 1)
Quarter: 2025Q3

REPORT INFORMATION
  Report Type: Spontaneous
  Country: US (occurrence: US)
  Receive Date: 20250703
  Receipt Date: 20250703
  Transmission Date: 20251020
  Serious: Yes (Other)
  Sender: SANOFI AVENTIS
  Company Number: US-SA-2025SA187978

PATIENT
  Age: 53 Year
  Sex: Female

DRUGS (37)
  1. REZUROCK [Suspect]
     Active Substance: BELUMOSUDIL
     Indication: Graft versus host disease
     Dosage: 200 MG, BID
     Route: 048
  2. DEXAMETHASONE [Concomitant]
     Active Substance: DEXAMETHASONE
  3. MONTELUKAST SODIUM [Concomitant]
     Active Substance: MONTELUKAST SODIUM
  4. PREDNISONE [Concomitant]
     Active Substance: PREDNISONE
  5. OMEPRAZOLE [Concomitant]
     Active Substance: OMEPRAZOLE
  6. MYFORTIC [Concomitant]
     Active Substance: MYCOPHENOLATE SODIUM
  7. PLAQUENIL [Concomitant]
     Active Substance: HYDROXYCHLOROQUINE SULFATE
  8. ACETAMINOPHEN [Concomitant]
     Active Substance: ACETAMINOPHEN
  9. ACYCLOVIR [Concomitant]
     Active Substance: ACYCLOVIR
  10. ALBUTEROL SULFATE [Concomitant]
     Active Substance: ALBUTEROL SULFATE
  11. ELIQUIS [Concomitant]
     Active Substance: APIXABAN
  12. ATORVASTATIN CALCIUM [Concomitant]
     Active Substance: ATORVASTATIN CALCIUM
  13. CALCIUM CARBONATE\CHOLECALCIFEROL [Concomitant]
     Active Substance: CALCIUM CARBONATE\CHOLECALCIFEROL
  14. Camphor;Menthol [Concomitant]
  15. CARVEDILOL [Concomitant]
     Active Substance: CARVEDILOL
  16. CETIRIZINE [Concomitant]
     Active Substance: CETIRIZINE HYDROCHLORIDE
  17. LOMOTIL [Concomitant]
     Active Substance: ATROPINE SULFATE\DIPHENOXYLATE HYDROCHLORIDE
  18. VIBERZI [Concomitant]
     Active Substance: ELUXADOLINE
  19. ESCITALOPRAM OXALATE [Concomitant]
     Active Substance: ESCITALOPRAM OXALATE
  20. FLUTICASONE PROPIONATE [Concomitant]
     Active Substance: FLUTICASONE PROPIONATE
  21. WIXELA INHUB [Concomitant]
     Active Substance: FLUTICASONE PROPIONATE\SALMETEROL XINAFOATE
     Route: 055
  22. FOLIC ACID [Concomitant]
     Active Substance: FOLIC ACID
  23. GABAPENTIN [Concomitant]
     Active Substance: GABAPENTIN
  24. HYDROCORTISONE [Concomitant]
     Active Substance: HYDROCORTISONE
  25. LORAZEPAM [Concomitant]
     Active Substance: LORAZEPAM
  26. VITAMINS [Concomitant]
     Active Substance: VITAMINS
  27. ONDANSETRON [Concomitant]
     Active Substance: ONDANSETRON
  28. PENICILLIN V POTASSIUM [Concomitant]
     Active Substance: PENICILLIN V POTASSIUM
  29. POTASSIUM CHLORIDE [Concomitant]
     Active Substance: POTASSIUM CHLORIDE
  30. PREMARIN [Concomitant]
     Active Substance: ESTROGENS, CONJUGATED
  31. TACROLIMUS [Concomitant]
     Active Substance: TACROLIMUS
  32. TEMAZEPAM [Concomitant]
     Active Substance: TEMAZEPAM
  33. TRIAMCINOLONE ACETONIDE [Concomitant]
     Active Substance: TRIAMCINOLONE ACETONIDE
  34. UREA [Concomitant]
     Active Substance: UREA
  35. LASIX [Concomitant]
     Active Substance: FUROSEMIDE
  36. SPIRONOLACTONE [Concomitant]
     Active Substance: SPIRONOLACTONE
  37. TRAMADOL [Concomitant]
     Active Substance: TRAMADOL

REACTIONS (1)
  - Compression fracture [Unknown]
